FAERS Safety Report 9665785 (Version 2)
Quarter: 2013Q4

REPORT INFORMATION
  Report Type: Spontaneous
  Country: BR (occurrence: BR)
  Receive Date: 20131104
  Receipt Date: 20131104
  Transmission Date: 20140711
  Serious: Yes (Other)
  Sender: FDA-Public Use
  Company Number: PHHY2013BR123792

PATIENT
  Age: 77 Year
  Sex: Female
  Weight: 56 kg

DRUGS (1)
  1. DIOVAN HCT [Suspect]
     Indication: HYPERTENSION
     Dosage: 1 DF (320MG VALS/25MG HCT), DAILY
     Route: 048
     Dates: start: 2006

REACTIONS (7)
  - Cerebrovascular accident [Unknown]
  - Diabetes mellitus [Unknown]
  - Hypertension [Not Recovered/Not Resolved]
  - Depression [Not Recovered/Not Resolved]
  - Vomiting [Recovered/Resolved]
  - Dizziness [Unknown]
  - Nausea [Recovered/Resolved]
